FAERS Safety Report 25244668 (Version 1)
Quarter: 2025Q2

REPORT INFORMATION
  Report Type: Spontaneous
  Country: CN (occurrence: CN)
  Receive Date: 20250428
  Receipt Date: 20250428
  Transmission Date: 20250717
  Serious: Yes (Hospitalization, Other)
  Sender: BAXTER
  Company Number: None

PATIENT
  Age: 1 Year
  Sex: Male
  Weight: 12 kg

DRUGS (6)
  1. CYCLOPHOSPHAMIDE [Suspect]
     Active Substance: CYCLOPHOSPHAMIDE
     Indication: Renal cancer
     Dosage: 0.6 G, QD
     Route: 041
     Dates: start: 20250321, end: 20250322
  2. SODIUM CHLORIDE [Suspect]
     Active Substance: SODIUM CHLORIDE
     Route: 041
     Dates: start: 20250321
  3. SODIUM CHLORIDE [Suspect]
     Active Substance: SODIUM CHLORIDE
     Dosage: 250 ML, QD WITH EPIRUBICIN HYDROCHLORIDE (D1-D3)
     Route: 041
     Dates: start: 20250321
  4. DEXTROSE\SODIUM CHLORIDE [Suspect]
     Active Substance: DEXTROSE\SODIUM CHLORIDE
     Dosage: 250 ML, QD WITH CYCLOPHOSPHAMIDE, D1-D2
     Route: 041
     Dates: start: 20250321
  5. EPIRUBICIN [Suspect]
     Active Substance: EPIRUBICIN
     Indication: Renal cancer
     Dosage: 13 MG, QD
     Route: 041
     Dates: start: 20250321, end: 20250323
  6. VINDESINE SULFATE [Suspect]
     Active Substance: VINDESINE SULFATE
     Indication: Renal cancer
     Dosage: 1.5 MG, QD
     Route: 041
     Dates: start: 20250321, end: 20250321

REACTIONS (1)
  - Myelosuppression [Recovering/Resolving]

NARRATIVE: CASE EVENT DATE: 20250324
